FAERS Safety Report 6751330-X (Version None)
Quarter: 2010Q2

REPORT INFORMATION
  Report Type: 
  Country: None (occurrence: None)
  Receive Date: 20100602
  Receipt Date: 20100527
  Transmission Date: 20101027
  Serious: Yes (Hospitalization)
  Sender: FDA-Public Use
  Company Number: CHPA2010US09156

PATIENT
  Age: 68 Year
  Sex: Female

DRUGS (2)
  1. PRIVATE LABEL (NCH) [Suspect]
     Indication: SMOKING CESSATION THERAPY
     Dosage: 21 MG, UNK
     Route: 062
     Dates: start: 20100401, end: 20100501
  2. PRIVATE LABEL (NCH) [Suspect]
     Dosage: 14 MG, UNK
     Route: 062
     Dates: start: 20100501, end: 20100501

REACTIONS (2)
  - HERPES ZOSTER [None]
  - INTESTINAL OBSTRUCTION [None]
